FAERS Safety Report 23099426 (Version 3)
Quarter: 2025Q3

REPORT INFORMATION
  Report Type: Report from Study
  Country: US (occurrence: US)
  Receive Date: 20231024
  Receipt Date: 20250929
  Transmission Date: 20251020
  Serious: Yes (Other)
  Sender: UCB
  Company Number: US-UCBSA-2023050790

PATIENT
  Sex: Female
  Weight: 41.2 kg

DRUGS (4)
  1. FINTEPLA [Suspect]
     Active Substance: FENFLURAMINE
     Indication: Lennox-Gastaut syndrome
     Dosage: 4 MILLILITER, 2X/DAY (BID)
     Route: 048
     Dates: start: 202210
  2. FINTEPLA [Suspect]
     Active Substance: FENFLURAMINE
     Dosage: 0.66 MILLIGRAM/KILOGRAM, ONCE DAILY (QD)
     Route: 048
  3. FINTEPLA [Suspect]
     Active Substance: FENFLURAMINE
     Dosage: 17.6 MILLIGRAM/KILOGRAM, ONCE DAILY (QD)
     Route: 048
  4. FINTEPLA [Suspect]
     Active Substance: FENFLURAMINE

REACTIONS (1)
  - Tricuspid valve incompetence [Not Recovered/Not Resolved]
